FAERS Safety Report 17541219 (Version 1)
Quarter: 2020Q1

REPORT INFORMATION
  Report Type: Spontaneous
  Country: DE (occurrence: DE)
  Receive Date: 20200313
  Receipt Date: 20200313
  Transmission Date: 20200409
  Serious: Yes (Life-Threatening, Hospitalization, Other)
  Sender: FDA-Public Use
  Company Number: DE-B.I. PHARMACEUTICALS,INC./RIDGEFIELD-2020-BI-014463

PATIENT
  Age: 53 Year
  Sex: Male

DRUGS (1)
  1. JARDIANCE [Suspect]
     Active Substance: EMPAGLIFLOZIN
     Indication: TYPE 3 DIABETES MELLITUS
     Route: 065
     Dates: start: 2016

REACTIONS (6)
  - Alcohol abuse [Unknown]
  - Diabetic ketoacidosis [Unknown]
  - Pancreatic pseudocyst [Unknown]
  - Blood glucose abnormal [Unknown]
  - Abdominal pain upper [Unknown]
  - Off label use [Unknown]
